FAERS Safety Report 10667146 (Version 1)
Quarter: 2014Q4

REPORT INFORMATION
  Report Type: Spontaneous
  Country: US (occurrence: None)
  Receive Date: 20141219
  Receipt Date: 20141219
  Transmission Date: 20150529
  Serious: Yes (Other)
  Sender: FDA-Public Use
  Company Number: None

PATIENT
  Age: 55 Year
  Sex: Female
  Weight: 56.7 kg

DRUGS (1)
  1. JANUVIA [Suspect]
     Active Substance: SITAGLIPTIN PHOSPHATE
     Indication: DIABETES MELLITUS
     Dosage: 1 PILL PER DAY  ONCE DAILY TAKEN BY MOUTH
     Route: 048
     Dates: start: 20140916, end: 20141218

REACTIONS (5)
  - Abdominal pain upper [None]
  - Cardiac disorder [None]
  - Chest pain [None]
  - Ulcer [None]
  - Panic reaction [None]
